FAERS Safety Report 7341320-0 (Version None)
Quarter: 2011Q1

REPORT INFORMATION
  Report Type: 
  Country: None (occurrence: None)
  Receive Date: 20110309
  Receipt Date: 20110228
  Transmission Date: 20110831
  Serious: Yes (Other)
  Sender: FDA-Public Use
  Company Number: SE-JNJFOC-20110301069

PATIENT
  Age: 51 Year
  Sex: Female

DRUGS (4)
  1. IPREN [Concomitant]
     Route: 065
  2. PREDNISOLONE [Concomitant]
     Route: 065
  3. METHOTREXATE [Concomitant]
     Route: 065
  4. REMICADE [Suspect]
     Indication: RHEUMATOID ARTHRITIS
     Route: 042

REACTIONS (3)
  - THROMBOCYTOPENIA [None]
  - PRURITUS [None]
  - NEURODERMATITIS [None]
